FAERS Safety Report 10260318 (Version 2)
Quarter: 2014Q4

REPORT INFORMATION
  Report Type: Spontaneous
  Country: US (occurrence: US)
  Receive Date: 20140625
  Receipt Date: 20141222
  Transmission Date: 20150528
  Serious: No
  Sender: FDA-Public Use
  Company Number: US-SA-2014SA066302

PATIENT
  Age: 43 Year
  Sex: Female

DRUGS (9)
  1. IBUPROFEN. [Concomitant]
     Active Substance: IBUPROFEN
     Indication: INFLAMMATION
     Route: 048
     Dates: start: 20080101
  2. PROTONIX [Concomitant]
     Active Substance: PANTOPRAZOLE SODIUM
     Route: 048
     Dates: start: 20100101
  3. CYMBALTA [Concomitant]
     Active Substance: DULOXETINE HYDROCHLORIDE
     Indication: PAIN
     Route: 048
     Dates: start: 20101209
  4. WELLBUTRIN [Concomitant]
     Active Substance: BUPROPION HYDROCHLORIDE
     Indication: DEPRESSION
     Route: 048
     Dates: start: 20090908
  5. LUNESTA [Concomitant]
     Active Substance: ESZOPICLONE
     Indication: SLEEP DISORDER
     Route: 048
     Dates: start: 20121215
  6. MAXALT [Concomitant]
     Active Substance: RIZATRIPTAN BENZOATE
     Indication: HEADACHE
     Dosage: SL
     Dates: start: 20110502
  7. BUSPAR [Concomitant]
     Active Substance: BUSPIRONE HYDROCHLORIDE
     Route: 048
     Dates: start: 20100513
  8. GABAPENTIN. [Concomitant]
     Active Substance: GABAPENTIN
     Indication: PAIN
     Dates: start: 20080101
  9. AUBAGIO [Suspect]
     Active Substance: TERIFLUNOMIDE
     Indication: MULTIPLE SCLEROSIS
     Route: 065
     Dates: start: 20140101

REACTIONS (1)
  - Alopecia [Recovering/Resolving]

NARRATIVE: CASE EVENT DATE: 20140325
